FAERS Safety Report 9069690 (Version 1)
Quarter: 2013Q1

REPORT INFORMATION
  Report Type: Report from Study
  Country: US (occurrence: US)
  Receive Date: 20130131
  Receipt Date: 20130131
  Transmission Date: 20140127
  Serious: No
  Sender: FDA-Public Use
  Company Number: US-ABBOTT-12P-163-1005968-00

PATIENT
  Age: 47 Year
  Sex: Male

DRUGS (3)
  1. HUMIRA [Suspect]
     Indication: PSORIASIS
     Dates: start: 20120709
  2. LISINOPRIL [Concomitant]
     Indication: HYPERTENSION
  3. ADVIL PM [Concomitant]
     Indication: ARTHRALGIA
     Route: 048

REACTIONS (2)
  - Weight decreased [Unknown]
  - Rash [Not Recovered/Not Resolved]
